FAERS Safety Report 4967468-3 (Version None)
Quarter: 2006Q2

REPORT INFORMATION
  Report Type: 
  Country: None (occurrence: None)
  Receive Date: 20060407
  Receipt Date: 20060407
  Transmission Date: 20061013
  Serious: Yes (Hospitalization, Disabling)
  Sender: FDA-Public Use
  Company Number: None

PATIENT
  Age: 52 Year
  Sex: Female

DRUGS (1)
  1. VALPROIC ACID [Suspect]

REACTIONS (3)
  - NECROSIS [None]
  - RASH [None]
  - VASCULITIS [None]
